FAERS Safety Report 20622453 (Version 1)
Quarter: 2022Q1

REPORT INFORMATION
  Report Type: Spontaneous
  Country: US (occurrence: US)
  Receive Date: 20220322
  Receipt Date: 20220322
  Transmission Date: 20220424
  Serious: No
  Sender: FDA-Public Use
  Company Number: US-ALLERGAN-2139890US

PATIENT
  Age: 75 Year
  Sex: Female

DRUGS (3)
  1. LUMIGAN [Suspect]
     Active Substance: BIMATOPROST
     Indication: Glaucoma
     Dosage: UNK
     Dates: start: 20211117
  2. Bausch and Lomb Smooth XP [Concomitant]
     Dosage: 1 DROP BOTH EYES 1 TO 2 TIMES A DAY
     Route: 047
  3. REFRESH RELIEVA PF [Concomitant]
     Active Substance: CARBOXYMETHYLCELLULOSE SODIUM\GLYCERIN
     Indication: Dry eye
     Dosage: UNK
     Route: 047

REACTIONS (6)
  - Glassy eyes [Recovered/Resolved]
  - Nervousness [Not Recovered/Not Resolved]
  - Accidental exposure to product [Not Recovered/Not Resolved]
  - Ocular hyperaemia [Recovering/Resolving]
  - Iris hyperpigmentation [Not Recovered/Not Resolved]
  - Blepharal pigmentation [Not Recovered/Not Resolved]

NARRATIVE: CASE EVENT DATE: 20211118
